FAERS Safety Report 6153774-6 (Version None)
Quarter: 2009Q2

REPORT INFORMATION
  Report Type: 
  Country: None (occurrence: None)
  Receive Date: 20090410
  Receipt Date: 20090331
  Transmission Date: 20091009
  Serious: Yes (Death)
  Sender: FDA-Public Use
  Company Number: APP200900174

PATIENT
  Age: 35 Year
  Sex: Male

DRUGS (9)
  1. PROPOFOL [Suspect]
     Indication: DRUG ABUSE
     Dosage: INTRAVENOUS
     Route: 042
     Dates: start: 20060101
  2. PROPOFOL [Suspect]
     Indication: DRUG ABUSE
     Dosage: INTRAVENOUS
     Route: 042
     Dates: start: 20070703
  3. VECURONIUM BROMIDE [Suspect]
     Indication: DRUG ABUSE
     Dosage: 10 MG
     Dates: start: 20081013
  4. MORPHINE [Suspect]
     Indication: DRUG ABUSE
     Dosage: INTRAMUSCULAR; INTRAVENOUS;  FOUR TEN MG BOTTLES
     Route: 030
     Dates: start: 20031201
  5. MORPHINE [Suspect]
     Indication: DRUG ABUSE
     Dosage: INTRAMUSCULAR; INTRAVENOUS;  FOUR TEN MG BOTTLES
     Route: 030
     Dates: start: 20060101
  6. MORPHINE [Suspect]
     Indication: DRUG ABUSE
     Dosage: INTRAMUSCULAR; INTRAVENOUS;  FOUR TEN MG BOTTLES
     Route: 030
     Dates: start: 20081013
  7. DILAUDID [Suspect]
     Indication: DRUG ABUSE
     Dosage: INTRAVENOUS;  FOUR TEN MG BOTTLES
     Dates: start: 20060101
  8. DEMEROL [Suspect]
     Indication: DRUG ABUSE
     Dosage: 50 MG
     Dates: start: 20081013
  9. FENTANYL-100 [Suspect]
     Indication: DRUG ABUSE
     Dosage: INTRAVENOUS
     Dates: start: 20060101

REACTIONS (11)
  - ABNORMAL BEHAVIOUR [None]
  - DRUG ABUSE [None]
  - DYSARTHRIA [None]
  - FALL [None]
  - INJURY [None]
  - JOB DISSATISFACTION [None]
  - OPEN WOUND [None]
  - OVERDOSE [None]
  - PERIORBITAL HAEMATOMA [None]
  - SELF-MEDICATION [None]
  - THEFT [None]
